FAERS Safety Report 4359991-X (Version None)
Quarter: 2004Q2

REPORT INFORMATION
  Report Type: 
  Country: None (occurrence: None)
  Receive Date: 20040513
  Receipt Date: 20040501
  Transmission Date: 20050107
  Serious: Yes (Other)
  Sender: FDA-Public Use
  Company Number: ENT 2004-0088

PATIENT
  Age: 69 Year
  Sex: Male

DRUGS (3)
  1. COMTAN [Suspect]
     Indication: PARKINSON'S DISEASE
     Dosage: ORAL; ORAL
     Route: 048
     Dates: start: 19980101, end: 19990101
  2. COMTAN [Suspect]
     Indication: PARKINSON'S DISEASE
     Dosage: ORAL; ORAL
     Route: 048
     Dates: start: 20020101, end: 20031001
  3. SINEMET [Concomitant]

REACTIONS (2)
  - HALLUCINATION [None]
  - SOMNOLENCE [None]
